FAERS Safety Report 9288075 (Version 1)
Quarter: 2013Q2

REPORT INFORMATION
  Report Type: Spontaneous
  Country: US (occurrence: None)
  Receive Date: 20130513
  Receipt Date: 20130513
  Transmission Date: 20140414
  Serious: Yes (Other)
  Sender: FDA-Public Use
  Company Number: None

PATIENT
  Sex: Female
  Weight: 104.33 kg

DRUGS (2)
  1. LEVOXYL [Suspect]
     Indication: THYROIDECTOMY
     Route: 048
     Dates: start: 20130101, end: 20130509
  2. LEVOXYL [Suspect]
     Indication: THYROIDECTOMY
     Dosage: 100, 88 MCG
     Route: 048
     Dates: start: 20120901, end: 20121231

REACTIONS (5)
  - Rash [None]
  - Rash [None]
  - Malaise [None]
  - Malaise [None]
  - Product quality issue [None]
